FAERS Safety Report 5641775-3 (Version None)
Quarter: 2008Q1

REPORT INFORMATION
  Report Type: 
  Country: None (occurrence: None)
  Receive Date: 20080227
  Receipt Date: 20080213
  Transmission Date: 20080703
  Serious: Yes (Other)
  Sender: FDA-Public Use
  Company Number: US-TYCO HEALTHCARE/MALLINCKRODT-T200800213

PATIENT

DRUGS (2)
  1. MORPHINE [Suspect]
     Indication: BACK PAIN
     Route: 037
  2. DILAUDID [Suspect]
     Indication: BACK PAIN
     Route: 037

REACTIONS (1)
  - SCOLIOSIS [None]
